FAERS Safety Report 11681723 (Version 3)
Quarter: 2015Q4

REPORT INFORMATION
  Report Type: Spontaneous
  Country: GB (occurrence: GB)
  Receive Date: 20151029
  Receipt Date: 20151125
  Transmission Date: 20160304
  Serious: Yes (Other)
  Sender: FDA-Public Use
  Company Number: GB-ACCORD-034699

PATIENT
  Age: 69 Year
  Sex: Female

DRUGS (6)
  1. LETROZOLE ACCORD [Suspect]
     Active Substance: LETROZOLE
     Indication: BREAST CANCER
     Route: 048
     Dates: start: 20140819
  2. PREGABALIN. [Concomitant]
     Active Substance: PREGABALIN
     Indication: NEURALGIA
     Route: 048
     Dates: start: 201208
  3. BENDROFLUMETHIAZIDE [Concomitant]
     Active Substance: BENDROFLUMETHIAZIDE
     Indication: BLOOD PRESSURE INCREASED
     Route: 048
     Dates: start: 2006
  4. LISINOPRIL. [Concomitant]
     Active Substance: LISINOPRIL
     Indication: BLOOD PRESSURE INCREASED
     Route: 048
     Dates: start: 200102
  5. MATRIFEN [Concomitant]
     Active Substance: FENTANYL
     Indication: BACK PAIN
     Dosage: MATRIFEN PATCHES
  6. AMITRIPTYLINE [Concomitant]
     Active Substance: AMITRIPTYLINE
     Route: 048
     Dates: start: 20140827, end: 20140917

REACTIONS (16)
  - Depressed mood [Recovering/Resolving]
  - Vulvovaginal discomfort [Recovering/Resolving]
  - Cystitis [Unknown]
  - Myalgia [Unknown]
  - Night sweats [Recovering/Resolving]
  - Faeces pale [Not Recovered/Not Resolved]
  - Insomnia [Unknown]
  - Change of bowel habit [Not Recovered/Not Resolved]
  - Vomiting [Unknown]
  - Back pain [Unknown]
  - Hot flush [Unknown]
  - Bursitis [Unknown]
  - Arthralgia [Unknown]
  - Quality of life decreased [Not Recovered/Not Resolved]
  - Bone pain [Unknown]
  - Fatigue [Unknown]
